FAERS Safety Report 4502906-1 (Version None)
Quarter: 2004Q4

REPORT INFORMATION
  Report Type: 
  Country: None (occurrence: None)
  Receive Date: 20041112
  Receipt Date: 20041104
  Transmission Date: 20050328
  Serious: Yes (Death)
  Sender: FDA-Public Use
  Company Number: 04H-163-0280203-00

PATIENT
  Age: 46 Year
  Sex: Male

DRUGS (5)
  1. MORPHINE SULFATE INJ [Suspect]
     Indication: BACK PAIN
     Dosage: ^1 IN ^, INTRAVENOUS
     Route: 042
     Dates: start: 20040515
  2. FENTANYL [Suspect]
     Indication: BACK PAIN
     Dosage: 100 UG/HR, 1 IN PATCH IN 72 HOURS, TRANDERMAL
     Route: 062
     Dates: start: 20040515, end: 20040516
  3. HYDROMORPHONE HYDROCHLORIDE [Suspect]
     Indication: BACK PAIN
     Dosage: ^1 IN^, INTRAVENOUS
     Route: 042
     Dates: start: 20040514
  4. PROMETHAZINE HCL [Suspect]
     Indication: BACK PAIN
     Dosage: ^1 IN^, INTRAVENOUS
     Route: 042
     Dates: start: 20040514
  5. HYDROCODONE [Concomitant]

REACTIONS (7)
  - CARDIAC ARREST [None]
  - COMA [None]
  - MULTI-ORGAN FAILURE [None]
  - RESPIRATORY DEPRESSION [None]
  - RHABDOMYOLYSIS [None]
  - SEDATION [None]
  - SOMNOLENCE [None]
